FAERS Safety Report 12066800 (Version 2)
Quarter: 2016Q1

REPORT INFORMATION
  Report Type: Report from Study
  Country: CR (occurrence: CR)
  Receive Date: 20160211
  Receipt Date: 20160212
  Transmission Date: 20160526
  Serious: No
  Sender: FDA-Public Use
  Company Number: PHHY2016CR016962

PATIENT
  Age: 84 Year
  Sex: Male

DRUGS (2)
  1. EXFORGE HCT [Suspect]
     Active Substance: AMLODIPINE BESYLATE\HYDROCHLOROTHIAZIDE\VALSARTAN
     Dosage: AMLODIPINE 10 MG, VALSARTAN 160 MG, HYDROCHLOROTHIAZIDE-12.5 MG
     Route: 065
     Dates: start: 20160203
  2. EXFORGE HCT [Suspect]
     Active Substance: AMLODIPINE BESYLATE\HYDROCHLOROTHIAZIDE\VALSARTAN
     Indication: PRODUCT USED FOR UNKNOWN INDICATION
     Dosage: AMLODIPINE 5 MG, VALSARTAN 160 MG, HYDROCHLOROTHIAZIDE-12.5 MGUNK

REACTIONS (1)
  - Hypoacusis [Unknown]
